FAERS Safety Report 4382868-0 (Version None)
Quarter: 2004Q2

REPORT INFORMATION
  Report Type: 
  Country: None (occurrence: None)
  Receive Date: 20040602
  Receipt Date: 20031001
  Transmission Date: 20050107
  Serious: Yes (Life-Threatening, Hospitalization, Other)
  Sender: FDA-Public Use
  Company Number: NSADSS2002044992

PATIENT
  Age: 49 Year
  Sex: Female
  Weight: 112.4921 kg

DRUGS (4)
  1. PROPULSID [Suspect]
     Dates: end: 19981118
  2. RELAFEN [Concomitant]
  3. ULTRAM [Concomitant]
  4. VITAMINS (VITAMINS) [Concomitant]

REACTIONS (5)
  - CARDIAC ARREST [None]
  - ELECTROCARDIOGRAM QT PROLONGED [None]
  - SINUS BRADYCARDIA [None]
  - VENTRICULAR FIBRILLATION [None]
  - VENTRICULAR TACHYCARDIA [None]
